FAERS Safety Report 19041948 (Version 1)
Quarter: 2021Q1

REPORT INFORMATION
  Report Type: Spontaneous
  Country: ES (occurrence: ES)
  Receive Date: 20210323
  Receipt Date: 20210323
  Transmission Date: 20210420
  Serious: Yes (Hospitalization)
  Sender: FDA-Public Use
  Company Number: NVSC2021ES055691

PATIENT
  Age: 92 Year
  Sex: Male

DRUGS (2)
  1. HALOPERIDOL. [Interacting]
     Active Substance: HALOPERIDOL
     Indication: AGITATION
     Dosage: 2.5 MG (TOTAL)
     Route: 042
     Dates: start: 20210126, end: 20210128
  2. OLANZAPINE. [Suspect]
     Active Substance: OLANZAPINE
     Indication: AGITATION
     Dosage: 10 MG, Q24H (10 MG)
     Route: 048
     Dates: start: 20210126, end: 20210128

REACTIONS (2)
  - Confusional state [Not Recovered/Not Resolved]
  - Rhabdomyolysis [Not Recovered/Not Resolved]

NARRATIVE: CASE EVENT DATE: 20210126
